FAERS Safety Report 5213118-0 (Version None)
Quarter: 2007Q1

REPORT INFORMATION
  Report Type: 
  Country: None (occurrence: None)
  Receive Date: 20070118
  Receipt Date: 20070118
  Transmission Date: 20070707
  Serious: Yes (Other)
  Sender: FDA-Public Use
  Company Number: None

PATIENT
  Sex: Male
  Weight: 90.7194 kg

DRUGS (3)
  1. CELEBREX [Suspect]
     Dosage: 200MG  QD  PO
     Route: 048
  2. LIDODERM [Concomitant]
  3. FLEXERIL [Concomitant]

REACTIONS (2)
  - CHOKING [None]
  - URTICARIA [None]
